FAERS Safety Report 7648952-0 (Version None)
Quarter: 2011Q3

REPORT INFORMATION
  Report Type: 
  Country: None (occurrence: None)
  Receive Date: 20110802
  Receipt Date: 20110727
  Transmission Date: 20111222
  Serious: Yes (Other)
  Sender: FDA-Public Use
  Company Number: CN-AMGEN-CHNSP2011038536

PATIENT
  Sex: Male
  Weight: 2.75 kg

DRUGS (1)
  1. ENBREL [Suspect]
     Indication: ANKYLOSING SPONDYLITIS
     Dosage: 2VIALS A TIME AS NEEDED
     Route: 064
     Dates: start: 20110101, end: 20110627

REACTIONS (3)
  - HYPOCALCAEMIA [None]
  - MATERNAL EXPOSURE DURING PREGNANCY [None]
  - HYPOGLYCAEMIA NEONATAL [None]
